FAERS Safety Report 23417792 (Version 1)
Quarter: 2024Q1

REPORT INFORMATION
  Report Type: Spontaneous
  Country: US (occurrence: US)
  Receive Date: 20240118
  Receipt Date: 20240118
  Transmission Date: 20240409
  Serious: No
  Sender: FDA-Public Use
  Company Number: US-Vifor (International) Inc.-VIT-2024-00100

PATIENT
  Age: 60 Year
  Sex: Female

DRUGS (6)
  1. VELTASSA [Suspect]
     Active Substance: PATIROMER
     Indication: Hyperkalaemia
     Dosage: DISSOLVE CONTENTS OF 2 PACKETS INTO 1/3 CUP OF WATER AND DRINK FULL AMOUNT ONCE DAILY AS DIRECTED
     Route: 048
     Dates: start: 20160618
  2. VELTASSA [Suspect]
     Active Substance: PATIROMER
     Route: 048
  3. BIOTIN [Concomitant]
     Active Substance: BIOTIN
  4. CLONIDINE [Concomitant]
     Active Substance: CLONIDINE
  5. RANITIDINE [Concomitant]
     Active Substance: RANITIDINE
  6. SODIUM BICARBONATE [Concomitant]
     Active Substance: SODIUM BICARBONATE

REACTIONS (2)
  - Off label use [Unknown]
  - Overdose [Unknown]

NARRATIVE: CASE EVENT DATE: 20160618
